FAERS Safety Report 17191610 (Version 2)
Quarter: 2020Q1

REPORT INFORMATION
  Report Type: Spontaneous
  Country: DE (occurrence: DE)
  Receive Date: 20191223
  Receipt Date: 20200108
  Transmission Date: 20200409
  Serious: Yes (Life-Threatening, Other)
  Sender: FDA-Public Use
  Company Number: DE-TEVA-2019-DE-1155607

PATIENT
  Age: 71 Year
  Sex: Male
  Weight: 80 kg

DRUGS (2)
  1. RANIDURA T 300MG [Suspect]
     Active Substance: RANITIDINE HYDROCHLORIDE
     Indication: DYSPEPSIA
     Dates: start: 2015
  2. RANITIDIN 300 FILMTABLETTEN [Suspect]
     Active Substance: RANITIDINE HYDROCHLORIDE
     Indication: DYSPEPSIA
     Dosage: 300 MG
     Route: 048
     Dates: start: 2015

REACTIONS (3)
  - Lung neoplasm malignant [Unknown]
  - Tongue neoplasm malignant stage unspecified [Unknown]
  - Renal cancer [Unknown]

NARRATIVE: CASE EVENT DATE: 20191012
